FAERS Safety Report 7004245-6 (Version None)
Quarter: 2010Q3

REPORT INFORMATION
  Report Type: 
  Country: None (occurrence: None)
  Receive Date: 20100920
  Receipt Date: 20100219
  Transmission Date: 20110219
  Serious: No
  Sender: FDA-Public Use
  Company Number: US-WYE-H13755110

PATIENT
  Sex: Female

DRUGS (2)
  1. PRISTIQ [Suspect]
     Indication: DEPRESSION
     Route: 048
     Dates: start: 20091115, end: 20100201
  2. PRISTIQ [Suspect]
     Indication: FATIGUE
     Dosage: ^TAPERED OFF^
     Route: 048
     Dates: start: 20100201

REACTIONS (7)
  - DRUG INEFFECTIVE [None]
  - DRUG WITHDRAWAL SYNDROME [None]
  - HEADACHE [None]
  - IRRITABILITY [None]
  - NAUSEA [None]
  - NIGHT SWEATS [None]
  - VOMITING [None]
